FAERS Safety Report 9527579 (Version 1)
Quarter: 2013Q1

REPORT INFORMATION
  Report Type: Spontaneous
  Country: US (occurrence: None)
  Receive Date: 20130314
  Receipt Date: 20130314
  Transmission Date: 20140127
  Serious: Yes (Other)
  Sender: FDA-Public Use
  Company Number: 1212USA002006

PATIENT
  Age: 56 Year
  Sex: Female

DRUGS (3)
  1. VICTRELIS [Suspect]
     Indication: HEPATITIS C
     Dosage: FOUR 200 MG CAPSULES EVERY 7 TO 9 HOURS, ORAL
     Route: 048
     Dates: start: 201209
  2. RIBASPHERE (RIBAVIRIN) [Suspect]
  3. PEGASYS [Suspect]

REACTIONS (1)
  - Treatment failure [None]
